FAERS Safety Report 4589178-7 (Version None)
Quarter: 2005Q1

REPORT INFORMATION
  Report Type: 
  Country: None (occurrence: None)
  Receive Date: 20050216
  Receipt Date: 20050216
  Transmission Date: 20050727
  Serious: No
  Sender: FDA-Public Use
  Company Number: None

PATIENT
  Age: 32 Year
  Sex: Male
  Weight: 106.5953 kg

DRUGS (1)
  1. MERIDIA [Suspect]
     Indication: WEIGHT CONTROL
     Dosage: ORAL ; 10.0 MILLIGRAM
     Route: 048
     Dates: start: 20040701, end: 20040703

REACTIONS (2)
  - BLOOD PRESSURE INCREASED [None]
  - HEART RATE INCREASED [None]
